FAERS Safety Report 13604604 (Version 1)
Quarter: 2017Q2

REPORT INFORMATION
  Report Type: Spontaneous
  Country: US (occurrence: US)
  Receive Date: 20170601
  Receipt Date: 20170601
  Transmission Date: 20170830
  Serious: No
  Sender: FDA-Public Use
  Company Number: None

PATIENT
  Age: 56 Year
  Sex: Female

DRUGS (1)
  1. HUMIRA [Suspect]
     Active Substance: ADALIMUMAB
     Indication: ANKYLOSING SPONDYLITIS
     Dosage: 40MG EVERY 14 DAYS SUBQ
     Route: 058
     Dates: start: 20170504, end: 20170531

REACTIONS (4)
  - Arthralgia [None]
  - Swelling [None]
  - Weight increased [None]
  - Sinus disorder [None]

NARRATIVE: CASE EVENT DATE: 20170531
